FAERS Safety Report 8661500 (Version 5)
Quarter: 2012Q4

REPORT INFORMATION
  Report Type: 
  Country: US (occurrence: US)
  Receive Date: 20120712
  Receipt Date: 20120913
  Transmission Date: 20130627
  Serious: Yes (Hospitalization, Other)
  Sender: FDA-Public Use
  Company Number: US-PFIZER INC-2012165078

PATIENT
  Age: 44 Year
  Sex: Female
  Weight: 56.24 kg

DRUGS (50)
  1. LIPITOR [Suspect]
     Indication: HYPERLIPIDAEMIA
     Dosage: 40 mg, 1x/day
     Route: 048
     Dates: start: 200904, end: 201201
  2. LIPITOR [Suspect]
     Indication: BLOOD TRIGLYCERIDES
  3. CINRYZE [Suspect]
     Indication: HEREDITARY ANGIOEDEMA
     Dosage: 1000 unit , 3x/week
     Route: 042
     Dates: start: 2010
  4. MAGNESIUM CITRATE [Concomitant]
     Indication: CONSTIPATION
     Dosage: UNK, as needed
     Route: 048
  5. EPIPEN [Concomitant]
     Indication: HYPERSENSITIVITY
     Dosage: 0.3 mg, as needed
  6. ALBUTEROL [Concomitant]
     Indication: ASTHMA
     Dosage: 90 ug, 2 puffs daily as needed
     Route: 055
  7. ASMANEX [Concomitant]
     Indication: ASTHMA
     Dosage: 220 ug, 2x/day
  8. ATENOLOL [Concomitant]
     Indication: HYPERTENSION
     Dosage: 50 mg, 1x/day
     Route: 048
  9. DANAZOL [Concomitant]
     Indication: HEREDITARY ANGIOEDEMA
     Dosage: 100 mg, 2 in 1 D
     Route: 048
  10. DANAZOL [Concomitant]
     Dosage: 200 mg, 2x/day
  11. DILAUDID [Concomitant]
     Indication: PAIN
     Dosage: 2 mg, as needed
  12. DILAUDID [Concomitant]
     Indication: PAIN
     Dosage: 1 mg, as needed
     Route: 042
  13. DIPHENHYDRAMINE [Concomitant]
     Dosage: 25 mg, 1x/day
     Route: 048
  14. FERROUS GLUCONATE [Concomitant]
     Dosage: UNK, 1x/day
  15. FIORICET [Concomitant]
     Indication: MIGRAINE
     Dosage: 325/50/50, UNK
  16. FOSAMAX [Concomitant]
     Indication: OSTEOPOROSIS
     Dosage: 70 mg, weekly
  17. KALBITOR [Concomitant]
     Indication: HEREDITARY ANGIOEDEMA
     Dosage: 30 mg, UNK
     Route: 058
  18. NASONEX [Concomitant]
     Indication: SEASONAL ALLERGY
     Dosage: 440 ug, (220 ug, 2 in 1D)
     Route: 045
  19. NORTRIPTYLINE [Concomitant]
     Indication: PAIN
     Dosage: 25 mg, 1x/day
     Route: 048
  20. NORTRIPTYLINE [Concomitant]
     Indication: INSOMNIA
     Dosage: 10 mg, at bedtime as needed
  21. OXYCODONE [Concomitant]
     Indication: PAIN
     Dosage: 5 mg, as needed
     Route: 048
  22. PHENARGAN [Concomitant]
     Indication: NAUSEA
     Dosage: 25 mg, as needed
     Route: 054
  23. PREVACID [Concomitant]
     Indication: GASTROOESOPHAGEAL REFLUX DISEASE
     Dosage: 30 mg, 1x/day, every morning
     Route: 048
  24. TRAZODONE [Concomitant]
     Indication: INSOMNIA
     Dosage: 100 mg, 1x/day
     Route: 048
  25. TRAZODONE [Concomitant]
     Dosage: UNK, as needed
  26. WARFARIN [Concomitant]
     Indication: DEEP VEIN THROMBOSIS
     Dosage: 5 mg, 1x/day
     Route: 048
     Dates: end: 201205
  27. WARFARIN [Concomitant]
     Indication: PULMONARY EMBOLISM
     Dosage: 10 mg, 1x/day
     Route: 048
     Dates: start: 201205, end: 201205
  28. WARFARIN [Concomitant]
     Dosage: 7.5 mg, 1x/day, Thursday
     Route: 048
     Dates: start: 201205
  29. WARFARIN [Concomitant]
     Dosage: 5 mg, 1x/day, rest of the week expect Thursday
  30. ZOFRAN [Concomitant]
     Indication: NAUSEA
     Dosage: 4 mg, every 6 hours as needed
  31. IBUPROFEN [Concomitant]
     Dosage: 200 mg, as needed
  32. TYLENOL [Concomitant]
     Dosage: 500 mg, as needed
  33. TYLENOL [Concomitant]
     Dosage: 325 mg, every 4 hours, as needed
     Route: 048
  34. SPIRIVA [Concomitant]
     Indication: ASTHMA
     Dosage: 18 ug, 1x/day
     Route: 045
  35. SPIRIVA [Concomitant]
     Indication: CHRONIC OBSTRUCTIVE PULMONARY DISEASE
  36. SOMA [Concomitant]
     Indication: MUSCLE RELAXANT THERAPY
     Dosage: 1050 mg (350 mg, 3 in 1 D)
     Route: 048
  37. SOMA [Concomitant]
     Indication: PAIN
  38. COLACE [Concomitant]
     Indication: CONSTIPATION
     Dosage: 100 mg, 1x/day
     Route: 048
  39. MIRALAX [Concomitant]
     Indication: CONSTIPATION
     Dosage: UNK, as needed
     Route: 048
  40. PROBIOTICS [Concomitant]
     Indication: DISBACTERIOSIS
     Dosage: UNK, 1x/day
     Route: 048
  41. DULCOLAX [Concomitant]
     Indication: FAECES HARD
     Dosage: UNK
     Route: 048
  42. DILANTIN [Concomitant]
     Indication: CONVULSION
     Dosage: 400 mg, 1x/day, at bedtime
  43. DILANTIN [Concomitant]
     Indication: EPILEPSY
     Dosage: 100 mg in the morning and 400 mg in the evening
     Route: 048
  44. METAMUCIL [Concomitant]
     Indication: CONSTIPATION
     Dosage: UNK
     Route: 048
  45. ASPIRIN [Concomitant]
     Dosage: 81 mg, Daily
     Route: 048
  46. FLEXERIL [Concomitant]
     Dosage: UNK
  47. IRON [Concomitant]
     Dosage: UNK
  48. ZOLOFT [Concomitant]
     Dosage: 50 mg, 1x/day
     Route: 048
  49. RESTORIL [Concomitant]
     Dosage: UNK, as needed
  50. COUMADIN [Concomitant]
     Indication: PULMONARY EMBOLISM
     Dosage: UNK

REACTIONS (9)
  - Pancreatitis [Recovered/Resolved]
  - Hepatic enzyme increased [Recovered/Resolved]
  - Hereditary angioedema [Recovered/Resolved]
  - Hereditary angioedema [Recovered/Resolved]
  - Urinary tract infection [Recovered/Resolved]
  - Transaminases increased [Recovered/Resolved]
  - Inappropriate schedule of drug administration [Unknown]
  - Anaemia [Unknown]
  - Prothrombin time prolonged [Unknown]
